FAERS Safety Report 12571955 (Version 3)
Quarter: 2017Q1

REPORT INFORMATION
  Report Type: Spontaneous
  Country: US (occurrence: US)
  Receive Date: 20160719
  Receipt Date: 20170111
  Transmission Date: 20170428
  Serious: No
  Sender: FDA-Public Use
  Company Number: US-ALKERMES INC.-ALK-2016-001031

PATIENT
  Age: 40 Year
  Sex: Male
  Weight: 101.13 kg

DRUGS (1)
  1. ARISTADA [Suspect]
     Active Substance: ARIPIPRAZOLE LAUROXIL
     Indication: SCHIZOPHRENIA
     Dosage: 882 MG, Q6WK
     Route: 030
     Dates: start: 20160201

REACTIONS (2)
  - Injection site pain [Recovering/Resolving]
  - Needle issue [Recovered/Resolved]

NARRATIVE: CASE EVENT DATE: 20160415
